FAERS Safety Report 9045196 (Version 1)
Quarter: 2013Q1

REPORT INFORMATION
  Report Type: Report from Study
  Country: US (occurrence: US)
  Receive Date: 20130130
  Receipt Date: 20130130
  Transmission Date: 20140127
  Serious: No
  Sender: FDA-Public Use
  Company Number: US-ABBOTT-12P-163-0970168-00

PATIENT
  Age: 21 Year
  Sex: Female

DRUGS (14)
  1. HUMIRA 40 MG/0.8 ML PEN [Suspect]
     Indication: CROHN^S DISEASE
     Dates: start: 201205
  2. ASACOL [Concomitant]
     Indication: CROHN^S DISEASE
  3. PRILOSEC [Concomitant]
     Indication: GASTROOESOPHAGEAL REFLUX DISEASE
  4. COLON HEALTH PROBIOTICS OTC [Concomitant]
     Indication: CROHN^S DISEASE
  5. ATIVAN [Concomitant]
     Indication: ANXIETY
  6. CLARITIN D-12 HRS OTC [Concomitant]
     Indication: HYPERSENSITIVITY
  7. MULTI VITAMIN [Concomitant]
     Indication: VITAMIN SUPPLEMENTATION
  8. CALCIUM [Concomitant]
     Indication: MINERAL SUPPLEMENTATION
  9. CAMRESE [Concomitant]
     Indication: CONTRACEPTION
  10. TYLENOL [Concomitant]
     Indication: HEADACHE
  11. VICODIN [Concomitant]
     Indication: ENDOMETRIOSIS
     Dosage: EVERY 6-8 HOURS
  12. FLUTICASONE [Concomitant]
     Indication: HYPERSENSITIVITY
     Route: 045
  13. PREDNISOLONE [Concomitant]
     Indication: HYPERSENSITIVITY
     Route: 031
  14. CLOTRIMAZOLE AND BETAMETHASONE DIPROPIONATE [Concomitant]
     Indication: BACTERIAL INFECTION

REACTIONS (4)
  - Sinus congestion [Not Recovered/Not Resolved]
  - Rhinorrhoea [Not Recovered/Not Resolved]
  - Throat irritation [Not Recovered/Not Resolved]
  - Ear discomfort [Not Recovered/Not Resolved]
